FAERS Safety Report 20894724 (Version 1)
Quarter: 2022Q2

REPORT INFORMATION
  Report Type: Spontaneous
  Country: US (occurrence: None)
  Receive Date: 20220527
  Receipt Date: 20220527
  Transmission Date: 20220721
  Serious: Yes (Life-Threatening)
  Sender: FDA-Public Use
  Company Number: None

PATIENT
  Age: 57 Year
  Sex: Male
  Weight: 81 kg

DRUGS (6)
  1. REMICADE [Suspect]
     Active Substance: INFLIXIMAB
     Indication: Colitis ulcerative
     Dosage: OTHER FREQUENCY : 1X EVERY 2 MONTHS;?
  2. MERCAPTOPURINE [Suspect]
     Active Substance: MERCAPTOPURINE
     Indication: Colitis ulcerative
     Dosage: FREQUENCY : DAILY;?
     Route: 048
  3. REMICADE [Concomitant]
     Active Substance: INFLIXIMAB
  4. TYLENOL [Concomitant]
     Active Substance: ACETAMINOPHEN
  5. VITAMIN D [Concomitant]
     Active Substance: VITAMIN D NOS
  6. IRON [Concomitant]
     Active Substance: IRON

REACTIONS (2)
  - Glioblastoma [None]
  - Terminal state [None]

NARRATIVE: CASE EVENT DATE: 20220408
